FAERS Safety Report 6043743-9 (Version None)
Quarter: 2009Q1

REPORT INFORMATION
  Report Type: 
  Country: None (occurrence: None)
  Receive Date: 20090120
  Receipt Date: 20090109
  Transmission Date: 20090719
  Serious: Yes (Other)
  Sender: FDA-Public Use
  Company Number: PHHY2008JP28471

PATIENT
  Age: 81 Year
  Sex: Female

DRUGS (1)
  1. FAMCICLOVIR [Suspect]
     Dosage: 1500 MG, QD
     Route: 048
     Dates: start: 20081016, end: 20081022

REACTIONS (1)
  - XANTHOPSIA [None]
